FAERS Safety Report 10285814 (Version 2)
Quarter: 2015Q1

REPORT INFORMATION
  Report Type: Spontaneous
  Country: US (occurrence: None)
  Receive Date: 20140703
  Receipt Date: 20150114
  Transmission Date: 20150720
  Serious: Yes (Hospitalization)
  Sender: FDA-Public Use
  Company Number: UNT-2014-002829

PATIENT
  Age: 58 Year
  Sex: Female

DRUGS (11)
  1. TYVASO [Suspect]
     Active Substance: TREPROSTINIL
     Indication: PULMONARY HYPERTENSION
     Route: 055
     Dates: start: 20130213, end: 20141211
  2. WARFARIN [Concomitant]
     Active Substance: WARFARIN
  3. HYDROCODONE/APAP (HYDROCODONE BITARTRATE, PARACETAMOL) [Concomitant]
  4. POTASSIUM [Concomitant]
     Active Substance: POTASSIUM
  5. LEVOTHYROXINE [Concomitant]
     Active Substance: LEVOTHYROXINE
  6. LETAIRIS (AMBRISENTATN) [Concomitant]
  7. FUROSEMIDE. [Concomitant]
     Active Substance: FUROSEMIDE
  8. TRAMADOL (TRAMADOL) [Concomitant]
     Active Substance: TRAMADOL
  9. LISINOPRIL. [Concomitant]
     Active Substance: LISINOPRIL
  10. FLONASE /00908302/ (MOMETASONE FUROATE) [Concomitant]
  11. OMEPRAZOLE. [Concomitant]
     Active Substance: OMEPRAZOLE

REACTIONS (6)
  - Drug intolerance [None]
  - Knee arthroplasty [None]
  - Headache [None]
  - Oropharyngeal pain [None]
  - Nausea [None]
  - Vomiting [None]

NARRATIVE: CASE EVENT DATE: 201302
